FAERS Safety Report 5491404-7 (Version None)
Quarter: 2007Q4

REPORT INFORMATION
  Report Type: 
  Country: None (occurrence: None)
  Receive Date: 20071018
  Receipt Date: 20071005
  Transmission Date: 20080405
  Serious: Yes (Hospitalization)
  Sender: FDA-Public Use
  Company Number: 2007S1009341

PATIENT
  Age: 52 Year
  Sex: Female

DRUGS (2)
  1. VERAPAMIL [Suspect]
  2. ACETAMINOPHEN [Suspect]

REACTIONS (8)
  - ASTHMA [None]
  - ATRIOVENTRICULAR BLOCK FIRST DEGREE [None]
  - BLOOD POTASSIUM DECREASED [None]
  - BUNDLE BRANCH BLOCK LEFT [None]
  - CARDIOGENIC SHOCK [None]
  - DRUG TOXICITY [None]
  - HEADACHE [None]
  - INTENTIONAL DRUG MISUSE [None]
